FAERS Safety Report 9085448 (Version 2)
Quarter: 2013Q2

REPORT INFORMATION
  Report Type: Spontaneous
  Country: US (occurrence: US)
  Receive Date: 20130131
  Receipt Date: 20130628
  Transmission Date: 20140414
  Serious: No
  Sender: FDA-Public Use
  Company Number: US-PFIZER INC-2013030641

PATIENT
  Sex: Male

DRUGS (2)
  1. VIAGRA [Suspect]
     Indication: ERECTILE DYSFUNCTION
     Dosage: 100 MG, AS NEEDED
     Route: 048
     Dates: end: 20130117
  2. VIAGRA [Suspect]
     Dosage: 50 MG, AS NEEDED
     Route: 048
     Dates: start: 20130117

REACTIONS (1)
  - Drug ineffective [Unknown]
